FAERS Safety Report 24536883 (Version 2)
Quarter: 2025Q1

REPORT INFORMATION
  Report Type: Spontaneous
  Country: US (occurrence: US)
  Receive Date: 20241022
  Receipt Date: 20250115
  Transmission Date: 20250408
  Serious: No
  Sender: SANOFI AVENTIS
  Company Number: US-SA-2024SA297143

PATIENT
  Age: 19 Year
  Sex: Male

DRUGS (1)
  1. ALTUVIIIO [Suspect]
     Active Substance: EFANESOCTOCOG ALFA
     Route: 042

REACTIONS (3)
  - Face injury [Unknown]
  - Traumatic haemorrhage [Unknown]
  - Cyst [Unknown]

NARRATIVE: CASE EVENT DATE: 20240901
